FAERS Safety Report 17372840 (Version 1)
Quarter: 2020Q1

REPORT INFORMATION
  Report Type: Spontaneous
  Country: US (occurrence: US)
  Receive Date: 20200205
  Receipt Date: 20200205
  Transmission Date: 20200409
  Serious: No
  Sender: FDA-Public Use
  Company Number: US-GALDERMA-US19051128

PATIENT
  Age: 64 Year
  Sex: Female

DRUGS (4)
  1. SOOLANTRA [Suspect]
     Active Substance: IVERMECTIN
     Indication: DEMODICIDOSIS
     Dosage: 1%
     Route: 061
     Dates: start: 20190721
  2. IVERMECTIN. [Concomitant]
     Active Substance: IVERMECTIN
     Indication: PRODUCT USED FOR UNKNOWN INDICATION
     Dosage: 4 TABLETS EVERY 4TH DAY
     Route: 048
  3. TOBRAMYCIN. [Concomitant]
     Active Substance: TOBRAMYCIN
     Indication: PRODUCT USED FOR UNKNOWN INDICATION
     Route: 061
  4. LOTEPREDNOL [Concomitant]
     Active Substance: LOTEPREDNOL
     Indication: PRODUCT USED FOR UNKNOWN INDICATION

REACTIONS (1)
  - Intentional product use issue [Recovered/Resolved]

NARRATIVE: CASE EVENT DATE: 20190721
